FAERS Safety Report 6776150-1 (Version None)
Quarter: 2010Q2

REPORT INFORMATION
  Report Type: 
  Country: None (occurrence: None)
  Receive Date: 20100615
  Receipt Date: 20100608
  Transmission Date: 20101027
  Serious: Yes (Other)
  Sender: FDA-Public Use
  Company Number: COM10-0767

PATIENT
  Sex: Female

DRUGS (1)
  1. QUININE [Suspect]
     Indication: MUSCLE SPASMS
     Dates: start: 19950101, end: 20070101

REACTIONS (3)
  - RENAL FAILURE [None]
  - THROMBOTIC THROMBOCYTOPENIC PURPURA [None]
  - UNEVALUABLE EVENT [None]
